FAERS Safety Report 13499469 (Version 3)
Quarter: 2017Q3

REPORT INFORMATION
  Report Type: Report from Study
  Country: US (occurrence: US)
  Receive Date: 20170501
  Receipt Date: 20170822
  Transmission Date: 20171127
  Serious: No
  Sender: FDA-Public Use
  Company Number: PHEH2017US012726

PATIENT
  Age: 38 Year
  Sex: Male

DRUGS (3)
  1. ENTRESTO [Suspect]
     Active Substance: SACUBITRIL\VALSARTAN
     Dosage: 1 DF, BID (SACUBITRIL 49 MG, VALSARTAN 51 MG)
     Route: 048
  2. ENTRESTO [Suspect]
     Active Substance: SACUBITRIL\VALSARTAN
     Indication: PRODUCT USED FOR UNKNOWN INDICATION
     Dosage: 0.5 DF, BID (SACUBITRIL 24 MG, VALSARTAN 26 MG)
     Route: 048
     Dates: start: 20170426, end: 20170426
  3. LASIX [Suspect]
     Active Substance: FUROSEMIDE
     Indication: PRODUCT USED FOR UNKNOWN INDICATION
     Route: 065

REACTIONS (7)
  - Hepatic pain [Unknown]
  - Blood pressure decreased [Unknown]
  - Blood iron increased [Unknown]
  - Dehydration [Unknown]
  - Wrong technique in product usage process [Unknown]
  - Liver disorder [Unknown]
  - Prescribed underdose [Unknown]

NARRATIVE: CASE EVENT DATE: 20170426
